FAERS Safety Report 5602092-0 (Version None)
Quarter: 2008Q1

REPORT INFORMATION
  Report Type: 
  Country: None (occurrence: None)
  Receive Date: 20080125
  Receipt Date: 20080118
  Transmission Date: 20080703
  Serious: Yes (Other)
  Sender: FDA-Public Use
  Company Number: HQWYE974610JUL04

PATIENT
  Sex: Female

DRUGS (4)
  1. PREMPRO [Suspect]
     Dosage: UNKNOWN
     Dates: start: 19990901, end: 20000801
  2. PROVERA [Suspect]
     Dosage: UNKNOWN
     Dates: start: 19991201, end: 20000301
  3. MEDROXYPROGESTERONE ACETATE [Suspect]
     Dosage: UNKNOWN
     Dates: start: 19991201, end: 20000301
  4. PREMARIN [Suspect]
     Dosage: UNKNOWN
     Dates: start: 19970101, end: 19970101

REACTIONS (3)
  - BREAST CANCER METASTATIC [None]
  - OESTROGEN RECEPTOR ASSAY POSITIVE [None]
  - PROGESTERONE RECEPTOR ASSAY POSITIVE [None]
